FAERS Safety Report 10009955 (Version 1)
Quarter: 2014Q1

REPORT INFORMATION
  Report Type: Spontaneous
  Country: US (occurrence: US)
  Receive Date: 20140312
  Receipt Date: 20140312
  Transmission Date: 20141002
  Serious: No
  Sender: FDA-Public Use
  Company Number: US-INCYTE CORPORATION-2013IN000746

PATIENT
  Age: 40 Year
  Sex: Male
  Weight: 97.05 kg

DRUGS (2)
  1. JAKAFI [Suspect]
     Indication: MYELOFIBROSIS
     Dosage: 15 MG, BID
     Route: 048
     Dates: start: 201212
  2. AMITRIPTYLINE [Concomitant]

REACTIONS (5)
  - Insomnia [Unknown]
  - Night sweats [Unknown]
  - Nail bed disorder [Unknown]
  - Headache [Unknown]
  - Weight increased [Unknown]
